FAERS Safety Report 14098612 (Version 1)
Quarter: 2017Q4

REPORT INFORMATION
  Report Type: Spontaneous
  Country: US (occurrence: US)
  Receive Date: 20171017
  Receipt Date: 20171017
  Transmission Date: 20180321
  Serious: Yes (Other)
  Sender: FDA-Public Use
  Company Number: US-LEXICON PHARMACEUTICALS, INC-17-1606-01008

PATIENT
  Sex: Male

DRUGS (7)
  1. LIPITOR [Concomitant]
     Active Substance: ATORVASTATIN CALCIUM
  2. PRILOSEC [Concomitant]
     Active Substance: OMEPRAZOLE MAGNESIUM
  3. CARVEDILOL. [Concomitant]
     Active Substance: CARVEDILOL
  4. TELOTRISTAT ETHYL [Suspect]
     Active Substance: TELOTRISTAT ETHYL
     Indication: CARCINOID TUMOUR OF THE GASTROINTESTINAL TRACT
     Route: 048
     Dates: start: 20170619
  5. LISINOPRIL. [Concomitant]
     Active Substance: LISINOPRIL
  6. FERREX [Concomitant]
     Active Substance: FERRIC POLYSACCHARIDE COMPLEX
  7. FUROSEMIDE. [Concomitant]
     Active Substance: FUROSEMIDE

REACTIONS (2)
  - Hospice care [Unknown]
  - Feeding tube user [Unknown]

NARRATIVE: CASE EVENT DATE: 2017
